FAERS Safety Report 19478181 (Version 1)
Quarter: 2021Q2

REPORT INFORMATION
  Report Type: Other
  Country: PL (occurrence: PL)
  Receive Date: 20210630
  Receipt Date: 20210630
  Transmission Date: 20210717
  Serious: Yes (Hospitalization)
  Sender: FDA-Public Use
  Company Number: PL-DEXPHARM-20210926

PATIENT
  Age: 6 Year
  Sex: Male

DRUGS (10)
  1. GANCICLOVIR. [Suspect]
     Active Substance: GANCICLOVIR
  2. CICLOSPORIN [Suspect]
     Active Substance: CYCLOSPORINE
  3. METHOTREXATE. [Suspect]
     Active Substance: METHOTREXATE
  4. TREOSULFAN [Concomitant]
     Active Substance: TREOSULFAN
  5. DEXAMETHASONE. [Suspect]
     Active Substance: DEXAMETHASONE
  6. CYCLOPHOSPHAMIDE. [Suspect]
     Active Substance: CYCLOPHOSPHAMIDE
  7. CIDOFOVIR. [Suspect]
     Active Substance: CIDOFOVIR
  8. ETOPOSIDE. [Suspect]
     Active Substance: ETOPOSIDE
  9. METHYLPREDNISOLONE. [Suspect]
     Active Substance: METHYLPREDNISOLONE
  10. RITUXIMAB. [Suspect]
     Active Substance: RITUXIMAB

REACTIONS (1)
  - Drug interaction [Recovered/Resolved]
